FAERS Safety Report 6444520-7 (Version None)
Quarter: 2009Q4

REPORT INFORMATION
  Report Type: 
  Country: None (occurrence: None)
  Receive Date: 20091118
  Receipt Date: 20091106
  Transmission Date: 20100525
  Serious: Yes (Hospitalization, Other)
  Sender: FDA-Public Use
  Company Number: JP-PFIZER INC-2009295385

PATIENT
  Age: 64 Year
  Sex: Female

DRUGS (4)
  1. ZITHROMAC SR [Suspect]
     Dosage: 2 G, 1X/DAY
     Route: 048
     Dates: start: 20091028, end: 20091028
  2. HERBESSER ^DELTA^ [Concomitant]
     Indication: HYPERTENSION
     Dosage: UNK
     Route: 048
  3. OMEPRAL [Concomitant]
     Dosage: UNK
     Route: 048
  4. BASEN [Concomitant]
     Indication: DIABETES MELLITUS
     Dosage: UNK
     Route: 048

REACTIONS (1)
  - ENTEROCOLITIS HAEMORRHAGIC [None]
